FAERS Safety Report 23159615 (Version 4)
Quarter: 2024Q3

REPORT INFORMATION
  Report Type: Report from Study
  Country: GB (occurrence: GB)
  Receive Date: 20231108
  Receipt Date: 20240924
  Transmission Date: 20241017
  Serious: Yes (Hospitalization)
  Sender: SANDOZ
  Company Number: GB-SANDOZ-SDZ2023GB051458

PATIENT
  Sex: Female

DRUGS (1)
  1. HYRIMOZ [Suspect]
     Active Substance: ADALIMUMAB-ADAZ
     Indication: Crohn^s disease
     Dosage: 40 MG, QW, STRENGTH-40MG/0.4ML SOLUTION FOR INJECTION IN PRE-FILLED PEN
     Route: 058

REACTIONS (4)
  - Dry mouth [Unknown]
  - Product use issue [Unknown]
  - Incorrect dose administered by device [Unknown]
  - Product preparation error [Unknown]
